FAERS Safety Report 6904257-4 (Version None)
Quarter: 2010Q3

REPORT INFORMATION
  Report Type: 
  Country: None (occurrence: None)
  Receive Date: 20100804
  Receipt Date: 20090403
  Transmission Date: 20110219
  Serious: No
  Sender: FDA-Public Use
  Company Number: US-PFIZER INC-2009182673

PATIENT
  Sex: Female
  Weight: 67.1 kg

DRUGS (2)
  1. LYRICA [Suspect]
     Indication: NEURALGIA
     Dosage: 150 MG, 2X/DAY
     Route: 048
     Dates: start: 20090308, end: 20090311
  2. NORTRIPTYLINE [Suspect]
     Dosage: UNK
     Dates: start: 20090308, end: 20090311

REACTIONS (5)
  - DIARRHOEA [None]
  - DYSPNOEA [None]
  - ERYTHEMA [None]
  - FEELING HOT [None]
  - NAUSEA [None]
